APPROVED DRUG PRODUCT: TRAMADOL HYDROCHLORIDE
Active Ingredient: TRAMADOL HYDROCHLORIDE
Strength: 50MG
Dosage Form/Route: TABLET;ORAL
Application: A202075 | Product #001 | TE Code: AB
Applicant: STRIDES PHARMA GLOBAL PTE LTD
Approved: Nov 28, 2011 | RLD: No | RS: No | Type: RX